FAERS Safety Report 11176823 (Version 1)
Quarter: 2015Q2

REPORT INFORMATION
  Report Type: Spontaneous
  Country: GB (occurrence: GB)
  Receive Date: 20150610
  Receipt Date: 20150610
  Transmission Date: 20150821
  Serious: Yes (Other)
  Sender: FDA-Public Use
  Company Number: GB-CIPLA LTD.-2015GB04519

PATIENT

DRUGS (5)
  1. IRINOTECAN [Suspect]
     Active Substance: IRINOTECAN
     Indication: COLORECTAL CANCER
     Dosage: 180 MG/M2, 28 DAY CYCLE, (90 MINUTE INFUSION) ON DAY 1
     Route: 042
  2. LEUCOVORIN [Suspect]
     Active Substance: LEUCOVORIN
     Indication: COLORECTAL CANCER
     Dosage: 90 MG, ON DAYS 1 TO 21 IN 3 DIVIDED DOSES
     Route: 065
  3. UFT [Suspect]
     Active Substance: TEGAFUR\URACIL
     Indication: COLORECTAL CANCER
     Dosage: 250 MG/M2, ON DAYS 1 TO 21 IN 3 DIVIDED DOSES
     Route: 065
  4. CETUXIMAB [Suspect]
     Active Substance: CETUXIMAB
     Indication: COLORECTAL CANCER
     Dosage: 500 MG/M2, EVERY 2 WEEKS
     Route: 065
  5. OXALIPLATIN. [Suspect]
     Active Substance: OXALIPLATIN
     Indication: COLORECTAL CANCER
     Dosage: 100 MG/M2, (2 HOUR INFUSION) ON DAY 15
     Route: 042

REACTIONS (1)
  - Dermatitis acneiform [Unknown]
